FAERS Safety Report 4564773-X (Version None)
Quarter: 2005Q1

REPORT INFORMATION
  Report Type: 
  Country: None (occurrence: None)
  Receive Date: 20050128
  Receipt Date: 20050126
  Transmission Date: 20050727
  Serious: Yes (Death)
  Sender: FDA-Public Use
  Company Number: US-ABBOTT-05P-163-0288307-00

PATIENT
  Age: 53 Year
  Sex: Male

DRUGS (5)
  1. RITONAVIR SOFT GELATIN CAPSULES (COMPARATOR) [Suspect]
     Indication: HIV INFECTION
     Route: 048
     Dates: start: 20030506, end: 20030715
  2. LOPINAVIR [Concomitant]
     Indication: HIV INFECTION
     Route: 048
     Dates: start: 20030506, end: 20030715
  3. STAVUDINE [Concomitant]
     Indication: HIV INFECTION
     Dates: start: 20030506, end: 20030715
  4. TENOFOVIR [Concomitant]
     Indication: HIV INFECTION
     Dates: start: 20030506, end: 20030715
  5. ENFUVIRTIDE [Concomitant]
     Indication: HIV INFECTION
     Dates: start: 20030506, end: 20030815

REACTIONS (2)
  - DEATH [None]
  - TREATMENT NONCOMPLIANCE [None]
